FAERS Safety Report 6199522-5 (Version None)
Quarter: 2009Q2

REPORT INFORMATION
  Report Type: 
  Country: None (occurrence: None)
  Receive Date: 20090522
  Receipt Date: 20090511
  Transmission Date: 20091009
  Serious: Yes (Congenital Anomaly)
  Sender: FDA-Public Use
  Company Number: A0695254A

PATIENT
  Sex: Female
  Weight: 3.1 kg

DRUGS (3)
  1. PAXIL [Suspect]
     Indication: DEPRESSION
     Dosage: 20MGD PER DAY
     Dates: start: 19961002, end: 20010416
  2. VITAMIN TAB [Concomitant]
     Dates: start: 19980601, end: 19981224
  3. NOVACET [Concomitant]
     Dates: start: 19980126, end: 19990228

REACTIONS (5)
  - CARDIAC DISORDER [None]
  - CARDIAC MURMUR [None]
  - DRUG EXPOSURE DURING PREGNANCY [None]
  - HEART DISEASE CONGENITAL [None]
  - VENTRICULAR SEPTAL DEFECT [None]
